FAERS Safety Report 7416731-5 (Version None)
Quarter: 2011Q2

REPORT INFORMATION
  Report Type: 
  Country: None (occurrence: None)
  Receive Date: 20110415
  Receipt Date: 20110405
  Transmission Date: 20111010
  Serious: No
  Sender: FDA-Public Use
  Company Number: US-BIOGENIDEC-2011BI013472

PATIENT
  Age: 40 Year
  Sex: Female

DRUGS (4)
  1. MOBIC [Concomitant]
  2. AMPYRA [Concomitant]
  3. TYSABRI [Suspect]
     Indication: MULTIPLE SCLEROSIS
     Route: 042
     Dates: start: 20101104
  4. ZANAFLEX [Concomitant]

REACTIONS (10)
  - PAPILLOEDEMA [None]
  - PERONEAL NERVE PALSY [None]
  - NEUROGENIC BLADDER [None]
  - DEPRESSED MOOD [None]
  - POLLAKIURIA [None]
  - HYPOAESTHESIA FACIAL [None]
  - DRY MOUTH [None]
  - NOCTURIA [None]
  - MULTIPLE SCLEROSIS RELAPSE [None]
  - PAIN [None]
